FAERS Safety Report 14506806 (Version 1)
Quarter: 2018Q1

REPORT INFORMATION
  Report Type: Spontaneous
  Country: US (occurrence: US)
  Receive Date: 20180207
  Receipt Date: 20180207
  Transmission Date: 20180509
  Serious: Yes (Hospitalization)
  Sender: FDA-Public Use
  Company Number: None

PATIENT
  Sex: Female
  Weight: 70.2 kg

DRUGS (8)
  1. MYREBTRIQ [Concomitant]
  2. VITAMIN D [Concomitant]
     Active Substance: CHOLECALCIFEROL
  3. VITAMIN C [Concomitant]
     Active Substance: ASCORBIC ACID
  4. ASPIRIN. [Concomitant]
     Active Substance: ASPIRIN
  5. LISINOPRIL. [Concomitant]
     Active Substance: LISINOPRIL
  6. HUMIRA [Suspect]
     Active Substance: ADALIMUMAB
     Indication: UVEITIS
     Dosage: QUANTITY:1 ONE TIME IN STOMAC;OTHER FREQUENCY:ONCE EVERY TWO WEE;OTHER ROUTE:SSOT IN STOMACH?
     Dates: start: 20180125, end: 20180125
  7. METFORMIN [Concomitant]
     Active Substance: METFORMIN HYDROCHLORIDE
  8. IMURAN [Concomitant]
     Active Substance: AZATHIOPRINE

REACTIONS (15)
  - Dyspnoea [None]
  - Pruritus [None]
  - Peripheral swelling [None]
  - Malaise [None]
  - Asthenia [None]
  - Flushing [None]
  - Gait disturbance [None]
  - Muscular weakness [None]
  - Arthralgia [None]
  - Paraesthesia [None]
  - Blood pressure increased [None]
  - Blood glucose increased [None]
  - Myalgia [None]
  - Muscle tightness [None]
  - Mental impairment [None]

NARRATIVE: CASE EVENT DATE: 20180125
